FAERS Safety Report 18755964 (Version 5)
Quarter: 2021Q1

REPORT INFORMATION
  Report Type: Spontaneous
  Country: AR (occurrence: AR)
  Receive Date: 20210119
  Receipt Date: 20210203
  Transmission Date: 20210419
  Serious: Yes (Life-Threatening, Hospitalization, Other)
  Sender: FDA-Public Use
  Company Number: AR-MYLANLABS-2021M1003229

PATIENT
  Age: 38 Year
  Sex: Female

DRUGS (5)
  1. LAPENAX [Suspect]
     Active Substance: CLOZAPINE
     Indication: DELUSION
     Dosage: UNK
     Dates: start: 20200918
  2. ARIPIPRAZOLE. [Concomitant]
     Active Substance: ARIPIPRAZOLE
     Dosage: 20 MILLIGRAM, QD
  3. CLONAZEPAM. [Concomitant]
     Active Substance: CLONAZEPAM
     Dosage: UNK
  4. LAPENAX [Suspect]
     Active Substance: CLOZAPINE
     Dosage: 700 MILLIGRAM, QD
     Dates: start: 20201201, end: 20210116
  5. VALPROIC ACID. [Concomitant]
     Active Substance: VALPROIC ACID
     Dosage: 1000 MILLIGRAM, QD

REACTIONS (7)
  - Leukopenia [Recovering/Resolving]
  - Neutropenia [Unknown]
  - Agranulocytosis [Unknown]
  - Mucosal inflammation [Unknown]
  - Psychomotor hyperactivity [Unknown]
  - Pyrexia [Recovered/Resolved]
  - Product use in unapproved indication [Unknown]

NARRATIVE: CASE EVENT DATE: 20210114
